FAERS Safety Report 10950347 (Version 1)
Quarter: 2015Q1

REPORT INFORMATION
  Report Type: Spontaneous
  Country: US (occurrence: US)
  Receive Date: 20150324
  Receipt Date: 20150324
  Transmission Date: 20150721
  Serious: No
  Sender: FDA-Public Use
  Company Number: US-SHIRE-US201502621

PATIENT
  Age: 68 Year
  Sex: Male

DRUGS (1)
  1. VYVANSE [Suspect]
     Active Substance: LISDEXAMFETAMINE DIMESYLATE
     Indication: MEMORY IMPAIRMENT
     Dosage: UNK, UNKNOWN
     Route: 048

REACTIONS (2)
  - Product use issue [Recovered/Resolved]
  - No adverse event [Recovered/Resolved]
